FAERS Safety Report 4674245-X (Version None)
Quarter: 2005Q2

REPORT INFORMATION
  Report Type: 
  Country: None (occurrence: None)
  Receive Date: 20050526
  Receipt Date: 20050517
  Transmission Date: 20051028
  Serious: Yes (Hospitalization, Other)
  Sender: FDA-Public Use
  Company Number: US-JNJFOC-20041100844

PATIENT
  Sex: Male
  Weight: 79.38 kg

DRUGS (2)
  1. TOPAMAX [Suspect]
     Indication: NEUROPATHY
     Dosage: (MAXIMUM DOSE)
     Route: 049
     Dates: start: 20040730, end: 20041126
  2. CELEBREX [Concomitant]
     Indication: MUSCULOSKELETAL PAIN
     Route: 049

REACTIONS (2)
  - MYOCARDIAL INFARCTION [None]
  - WEIGHT DECREASED [None]
